FAERS Safety Report 10158231 (Version 1)
Quarter: 2014Q2

REPORT INFORMATION
  Report Type: Spontaneous
  Country: US (occurrence: NO)
  Receive Date: 20140507
  Receipt Date: 20140507
  Transmission Date: 20141212
  Serious: Yes (Other)
  Sender: FDA-Public Use
  Company Number: NO-FRI-1000067120

PATIENT
  Sex: Male

DRUGS (12)
  1. ROFLUMILAST [Suspect]
     Route: 048
  2. NORSPAN [Concomitant]
     Route: 062
  3. ALBYL-E [Concomitant]
  4. IBUX [Concomitant]
  5. ISOPTIN [Concomitant]
  6. LOSARTAN [Concomitant]
  7. METFORMIN [Concomitant]
  8. MONOKET [Concomitant]
  9. PANODIL [Concomitant]
  10. ULTIBRO [Concomitant]
  11. TOLVON [Concomitant]
  12. INSULINE [Concomitant]

REACTIONS (1)
  - Gastrointestinal haemorrhage [Recovered/Resolved]
